FAERS Safety Report 8131457-0 (Version None)
Quarter: 2012Q1

REPORT INFORMATION
  Report Type: 
  Country: None (occurrence: None)
  Receive Date: 20120213
  Receipt Date: 20120131
  Transmission Date: 20120608
  Serious: Yes (Other)
  Sender: FDA-Public Use
  Company Number: CA-CUBIST-2012S1000127

PATIENT
  Age: 48 Year
  Sex: Male

DRUGS (1)
  1. CUBICIN [Suspect]
     Indication: ENDOCARDITIS
     Route: 042
     Dates: start: 20120120

REACTIONS (3)
  - NIGHTMARE [None]
  - HALLUCINATION, AUDITORY [None]
  - HALLUCINATION [None]
